FAERS Safety Report 16926947 (Version 1)
Quarter: 2019Q4

REPORT INFORMATION
  Report Type: Spontaneous
  Country: JP (occurrence: JP)
  Receive Date: 20191016
  Receipt Date: 20191016
  Transmission Date: 20200122
  Serious: Yes (Death, Hospitalization)
  Sender: FDA-Public Use
  Company Number: JP-EISAI MEDICAL RESEARCH-EC-2019-063500

PATIENT
  Age: 74 Year
  Sex: Male

DRUGS (4)
  1. LENVIMA [Suspect]
     Active Substance: LENVATINIB
     Route: 048
     Dates: start: 201602, end: 201605
  2. LENVIMA [Suspect]
     Active Substance: LENVATINIB
     Indication: PAPILLARY THYROID CANCER
     Route: 048
     Dates: start: 201510, end: 201511
  3. LENVIMA [Suspect]
     Active Substance: LENVATINIB
     Route: 048
     Dates: start: 201511, end: 201601
  4. LENVIMA [Suspect]
     Active Substance: LENVATINIB
     Route: 048
     Dates: start: 201608, end: 201801

REACTIONS (8)
  - Tracheo-oesophageal fistula [Unknown]
  - Proteinuria [Unknown]
  - Pneumonia [Unknown]
  - Melaena [Unknown]
  - Oedema peripheral [Unknown]
  - Loss of consciousness [Unknown]
  - Oedema [Unknown]
  - Hypertension [Unknown]

NARRATIVE: CASE EVENT DATE: 201511
